FAERS Safety Report 5452798-1 (Version None)
Quarter: 2007Q3

REPORT INFORMATION
  Report Type: 
  Country: None (occurrence: None)
  Receive Date: 20070914
  Receipt Date: 20070906
  Transmission Date: 20080115
  Serious: Yes (Other)
  Sender: FDA-Public Use
  Company Number: US-PURDUE-USA_2007_0029108

PATIENT
  Sex: Male

DRUGS (1)
  1. OXYCODONE HCL [Suspect]
     Indication: PAIN
     Dosage: 40 MG, BID
     Route: 048
     Dates: end: 20070906

REACTIONS (5)
  - INCOHERENT [None]
  - LOSS OF CONSCIOUSNESS [None]
  - NAUSEA [None]
  - SINUSITIS [None]
  - VOMITING [None]
